FAERS Safety Report 20571622 (Version 1)
Quarter: 2022Q1

REPORT INFORMATION
  Report Type: Spontaneous
  Country: US (occurrence: None)
  Receive Date: 20220308
  Receipt Date: 20220308
  Transmission Date: 20220423
  Serious: No
  Sender: FDA-Public Use
  Company Number: None

PATIENT
  Age: 70 Year
  Sex: Female
  Weight: 74.39 kg

DRUGS (1)
  1. CELECOXIB [Suspect]
     Active Substance: CELECOXIB
     Indication: Rheumatoid arthritis
     Dosage: TAKE 1 CAPSULE  BY MOUTH DAILY  AS DIRECTED      ?
     Route: 048
     Dates: start: 201507

REACTIONS (2)
  - Spinal disorder [None]
  - Fall [None]
